FAERS Safety Report 20693908 (Version 1)
Quarter: 2022Q2

REPORT INFORMATION
  Report Type: Spontaneous
  Country: TR (occurrence: TR)
  Receive Date: 20220411
  Receipt Date: 20220411
  Transmission Date: 20220720
  Serious: Yes (Hospitalization, Other)
  Sender: FDA-Public Use
  Company Number: TR-AMGEN-TURSP2022059609

PATIENT
  Sex: Female

DRUGS (5)
  1. NEUPOGEN [Suspect]
     Active Substance: FILGRASTIM
     Indication: Stem cell transplant
     Dosage: UNK
     Route: 065
     Dates: start: 2021
  2. NEUPOGEN [Suspect]
     Active Substance: FILGRASTIM
     Dosage: UNK, BID THREE TO FOUR DAYS
     Route: 065
     Dates: start: 2021
  3. CORTISONE ACETATE [Concomitant]
     Active Substance: CORTISONE ACETATE
     Dosage: FOR 4 WEEKS
     Dates: start: 2021
  4. ZOMETA [Concomitant]
     Active Substance: ZOLEDRONIC ACID
     Indication: Bone disorder
     Dosage: UNK, QMO
     Dates: start: 2021
  5. ZOMETA [Concomitant]
     Active Substance: ZOLEDRONIC ACID
     Dosage: UNK, QMO (FOR SIX MONTHS)
     Dates: start: 2021

REACTIONS (7)
  - Thrombosis [Recovered/Resolved]
  - Pain of skin [Recovering/Resolving]
  - Stomatitis [Recovering/Resolving]
  - Bone pain [Recovering/Resolving]
  - Vomiting [Recovering/Resolving]
  - Asthenia [Recovering/Resolving]
  - Alopecia [Unknown]

NARRATIVE: CASE EVENT DATE: 20210101
